FAERS Safety Report 8562429 (Version 5)
Quarter: 2014Q2

REPORT INFORMATION
  Report Type: Spontaneous
  Country: FR (occurrence: FR)
  Receive Date: 20120509
  Receipt Date: 20140606
  Transmission Date: 20141212
  Serious: Yes (Hospitalization)
  Sender: FDA-Public Use
  Company Number: FR-009507513-2012SP023333

PATIENT
  Age: 45 Year
  Sex: Male
  Weight: 79 kg

DRUGS (5)
  1. VICTRELIS [Suspect]
     Indication: HEPATITIS C
     Dosage: 800 MG, TID
     Dates: start: 20110614
  2. VIRAFERONPEG [Suspect]
     Indication: ANAEMIA
     Dosage: 1 ?G/KG, QW
     Dates: start: 20110517
  3. COPEGUS [Suspect]
     Indication: NEUTROPENIA
     Dosage: 1000 MG, QD
     Dates: start: 20110517
  4. NEORECORMON [Concomitant]
     Indication: ANAEMIA
     Dosage: 30000 IU, QW
     Dates: start: 20110627
  5. NEUPOGEN [Concomitant]
     Indication: NEUTROPENIA
     Dosage: DOSE REPORTED INCORRECT
     Dates: start: 20110627

REACTIONS (1)
  - Abdominal pain [Recovered/Resolved]
